FAERS Safety Report 25959414 (Version 1)
Quarter: 2025Q4

REPORT INFORMATION
  Report Type: Report from Study
  Country: EU (occurrence: EU)
  Receive Date: 20251026
  Receipt Date: 20251026
  Transmission Date: 20260117
  Serious: Yes (Other)
  Sender: CELLTRION
  Company Number: EU-ROCHE-10000098341

PATIENT

DRUGS (2)
  1. TRASTUZUMAB [Suspect]
     Active Substance: TRASTUZUMAB
     Indication: HER2 positive breast cancer
     Dosage: UNK
     Route: 065
  2. PERTUZUMAB [Suspect]
     Active Substance: PERTUZUMAB
     Indication: HER2 positive breast cancer
     Dosage: UNK
     Route: 065

REACTIONS (20)
  - Hyperthyroidism [Unknown]
  - Polyneuropathy [Unknown]
  - Polyneuropathy [Unknown]
  - Sleep disorder [Unknown]
  - Eye inflammation [Unknown]
  - Peripheral vascular disorder [Unknown]
  - Taste disorder [Unknown]
  - Apathy [Unknown]
  - Photosensitivity reaction [Unknown]
  - Rash [Unknown]
  - Bone pain [Unknown]
  - Pruritus [Unknown]
  - Fatigue [Unknown]
  - Nausea [Unknown]
  - Arthralgia [Unknown]
  - Herpes virus infection [Unknown]
  - Diarrhoea [Unknown]
  - Stomatitis [Unknown]
  - Weight decreased [Unknown]
  - Diarrhoea [Unknown]

NARRATIVE: CASE EVENT DATE: 20240701
